FAERS Safety Report 7157824-X (Version None)
Quarter: 2010Q4

REPORT INFORMATION
  Report Type: 
  Country: None (occurrence: None)
  Receive Date: 20101214
  Receipt Date: 20101208
  Transmission Date: 20110411
  Serious: Yes (Other)
  Sender: FDA-Public Use
  Company Number: ES-BRISTOL-MYERS SQUIBB COMPANY-15409352

PATIENT
  Age: 57 Year
  Sex: Male

DRUGS (3)
  1. SUSTIVA [Suspect]
     Dosage: RESTARTED ON 23JUL10
     Dates: start: 20011201
  2. VIREAD [Suspect]
     Dates: start: 20100723
  3. LAMIVUDINE [Suspect]
     Dates: start: 20100723

REACTIONS (4)
  - ANXIETY [None]
  - COGNITIVE DISORDER [None]
  - INSOMNIA [None]
  - VIROLOGIC FAILURE [None]
